FAERS Safety Report 18073226 (Version 8)
Quarter: 2020Q4

REPORT INFORMATION
  Report Type: Spontaneous
  Country: US (occurrence: US)
  Receive Date: 20200727
  Receipt Date: 20201121
  Transmission Date: 20210113
  Serious: Yes (Other)
  Sender: FDA-Public Use
  Company Number: US-UNITED THERAPEUTICS-UNT-2020-010050

PATIENT
  Sex: Female
  Weight: 86.17 kg

DRUGS (10)
  1. REMODULIN [Suspect]
     Active Substance: TREPROSTINIL
     Dosage: 0.026 ?G/KG, CONTINUING
     Route: 058
     Dates: start: 2020
  2. REMODULIN [Suspect]
     Active Substance: TREPROSTINIL
     Indication: PULMONARY ARTERIAL HYPERTENSION
     Dosage: UNK, CONTINUING
     Route: 058
     Dates: start: 2020
  3. REMODULIN [Suspect]
     Active Substance: TREPROSTINIL
     Dosage: 0.038 ?G/KG, CONTINUING (54720 NG/KG)
     Route: 058
     Dates: start: 2020
  4. OPSUMIT [Suspect]
     Active Substance: MACITENTAN
     Dosage: 10 MG, QD (10 MG, ONE IN ONE DAY)
     Route: 048
     Dates: start: 2020
  5. OPSUMIT [Suspect]
     Active Substance: MACITENTAN
     Dosage: UNK
     Route: 048
  6. REMODULIN [Suspect]
     Active Substance: TREPROSTINIL
     Indication: PULMONARY ARTERIAL HYPERTENSION
     Dosage: UNK, CONTINUING
     Route: 058
     Dates: start: 20200518
  7. REMODULIN [Suspect]
     Active Substance: TREPROSTINIL
     Dosage: 0.036 ?G/KG, CONTINUING
     Route: 058
     Dates: start: 2020
  8. OPSUMIT [Suspect]
     Active Substance: MACITENTAN
     Dosage: 10 MG, QD (10 MG, ONE IN ONE DAY)
     Route: 048
     Dates: start: 2020
  9. OPSUMIT [Suspect]
     Active Substance: MACITENTAN
     Dosage: 10 MG, QD (10 MG, ONE IN ONE DAY)
     Route: 048
     Dates: start: 2020
  10. OPSUMIT [Suspect]
     Active Substance: MACITENTAN
     Indication: PULMONARY ARTERIAL HYPERTENSION
     Dosage: UNK
     Route: 048
     Dates: start: 20200626

REACTIONS (41)
  - Abdominal distension [Unknown]
  - Ulcer [Unknown]
  - Exercise tolerance decreased [Unknown]
  - Skin striae [Not Recovered/Not Resolved]
  - Head discomfort [Unknown]
  - Throat irritation [Unknown]
  - Abdominal pain lower [Unknown]
  - Depressed mood [Unknown]
  - Dyspnoea exertional [Unknown]
  - Heart rate increased [Unknown]
  - Anxiety [Unknown]
  - Weight increased [Unknown]
  - Irritable bowel syndrome [Unknown]
  - Abdominal discomfort [Unknown]
  - Liver disorder [Unknown]
  - Burning sensation [Unknown]
  - Headache [Unknown]
  - Epistaxis [Unknown]
  - Infusion site pain [Not Recovered/Not Resolved]
  - Insomnia [Unknown]
  - Nasal dryness [Unknown]
  - Pain [Unknown]
  - Vomiting [Unknown]
  - Feeling abnormal [Unknown]
  - Hypoacusis [Unknown]
  - Gastrointestinal motility disorder [Not Recovered/Not Resolved]
  - Oxygen saturation decreased [Unknown]
  - Nocturnal dyspnoea [Unknown]
  - Chest pain [Unknown]
  - Nausea [Unknown]
  - Nasal congestion [Unknown]
  - Neoplasm [Unknown]
  - Decreased appetite [Unknown]
  - Sinusitis [Unknown]
  - Tinnitus [Unknown]
  - Gastric disorder [Not Recovered/Not Resolved]
  - Dyspnoea [Unknown]
  - Libido decreased [Unknown]
  - Seasonal allergy [Unknown]
  - Ear discomfort [Unknown]
  - Abdominal pain upper [Not Recovered/Not Resolved]

NARRATIVE: CASE EVENT DATE: 2020
